FAERS Safety Report 8677642 (Version 2)
Quarter: 2013Q4

REPORT INFORMATION
  Report Type: Spontaneous
  Country: JP (occurrence: JP)
  Receive Date: 20120723
  Receipt Date: 20131031
  Transmission Date: 20140711
  Serious: Yes (Hospitalization)
  Sender: FDA-Public Use
  Company Number: JP-009507513-1207JPN003649

PATIENT
  Age: 73 Year
  Sex: Male

DRUGS (1)
  1. INTRONA [Suspect]
     Dosage: DOSAGE PER DAY IS UNCERTAIN.
     Route: 030
     Dates: start: 2005

REACTIONS (1)
  - Tracheal papilloma [Unknown]
